FAERS Safety Report 21236738 (Version 1)
Quarter: 2022Q3

REPORT INFORMATION
  Report Type: Spontaneous
  Country: US (occurrence: None)
  Receive Date: 20220822
  Receipt Date: 20220822
  Transmission Date: 20221027
  Serious: No
  Sender: FDA-Public Use
  Company Number: US-Unichem Pharmaceuticals (USA) Inc-UCM202207-000677

PATIENT
  Sex: Female

DRUGS (2)
  1. TRAMADOL HCL [Suspect]
     Active Substance: TRAMADOL HYDROCHLORIDE
     Indication: Pain
     Dosage: UNKNOWN
     Dates: start: 2008
  2. TRAMADOL HCL [Suspect]
     Active Substance: TRAMADOL HYDROCHLORIDE
     Dosage: UNKNOWN

REACTIONS (6)
  - Feeling abnormal [Unknown]
  - Tinnitus [Unknown]
  - Asthenia [Unknown]
  - Cognitive disorder [Unknown]
  - Drug intolerance [Unknown]
  - Drug ineffective [Unknown]
